FAERS Safety Report 5414457-0 (Version None)
Quarter: 2007Q3

REPORT INFORMATION
  Report Type: 
  Country: None (occurrence: None)
  Receive Date: 20070731
  Receipt Date: 20070524
  Transmission Date: 20080115
  Serious: No
  Sender: FDA-Public Use
  Company Number: US200705006587

PATIENT
  Age: 52 Year
  Sex: Female
  Weight: 87.1 kg

DRUGS (2)
  1. BYETTA [Suspect]
     Indication: TYPE 2 DIABETES MELLITUS
     Dosage: 5 UG, 2/D, SUBCUTANEOUS
     Route: 058
     Dates: start: 20070401
  2. VITAMIN B12 [Concomitant]

REACTIONS (7)
  - BURNING SENSATION [None]
  - DRY SKIN [None]
  - ERYTHEMA [None]
  - PAIN IN EXTREMITY [None]
  - PRURITUS [None]
  - SKIN EXFOLIATION [None]
  - SKIN WRINKLING [None]
